FAERS Safety Report 5405096-6 (Version None)
Quarter: 2007Q3

REPORT INFORMATION
  Report Type: 
  Country: None (occurrence: None)
  Receive Date: 20070803
  Receipt Date: 20070724
  Transmission Date: 20080115
  Serious: Yes (Death, Hospitalization)
  Sender: FDA-Public Use
  Company Number: FR-ROCHE-508688

PATIENT
  Age: 75 Year
  Sex: Male

DRUGS (6)
  1. ROCEPHIN [Suspect]
     Indication: DRUG USE FOR UNKNOWN INDICATION
     Route: 065
     Dates: start: 20070308, end: 20070317
  2. OFLOCET [Suspect]
     Indication: DRUG USE FOR UNKNOWN INDICATION
     Dosage: TWO TABLETS DAILY.
     Route: 048
     Dates: start: 20070308, end: 20070317
  3. LEXOMIL [Concomitant]
     Dosage: DOSAGE REGIMEN REPORTED AS 1/4 OF A TABLET DAILY BEFORE SLEEPING.
     Dates: start: 20070318, end: 20070330
  4. TRACLEER [Concomitant]
     Route: 048
     Dates: start: 20070315
  5. ZOLPIDEM TARTRATE [Concomitant]
     Route: 048
     Dates: start: 20070308, end: 20070318
  6. POLARAMINE [Concomitant]
     Dosage: DOSAGE REGIMEN REPORTED AS 2 DOSES DAILY.
     Route: 048
     Dates: start: 20070315

REACTIONS (4)
  - AGRANULOCYTOSIS [None]
  - CARDIAC ARREST [None]
  - COR PULMONALE ACUTE [None]
  - LEUKOPENIA [None]
